FAERS Safety Report 7801932-4 (Version None)
Quarter: 2011Q4

REPORT INFORMATION
  Report Type: 
  Country: None (occurrence: None)
  Receive Date: 20111007
  Receipt Date: 20111007
  Transmission Date: 20120403
  Serious: Yes (Hospitalization)
  Sender: FDA-Public Use
  Company Number: None

PATIENT
  Age: 60 Year
  Sex: Female
  Weight: 90.5 kg

DRUGS (15)
  1. ADVAIR 500/50MCG INHALATION [Concomitant]
  2. DABIGATRAN [Suspect]
     Indication: ATRIAL FIBRILLATION
     Dosage: 150MG
     Route: 048
     Dates: start: 20110601, end: 20110701
  3. ASPIRIN [Concomitant]
     Route: 048
  4. POTASSIUM CHLORIDE [Concomitant]
     Route: 048
  5. FUROSEMIDE [Concomitant]
     Route: 048
  6. CHOLECALCIFEROL [Concomitant]
     Route: 048
  7. DIGOXIN [Concomitant]
     Route: 048
  8. ALBUTEROL [Concomitant]
     Route: 045
  9. OMEPRAZOLE [Concomitant]
     Route: 048
  10. METOPROLOL TARTRATE [Concomitant]
     Route: 048
  11. TIOPRONIN [Concomitant]
     Route: 045
  12. IPRATROPIUM BROMIDE [Concomitant]
     Route: 045
  13. HYDROXYZINE [Concomitant]
     Route: 048
  14. SILDENAFIL CITRATE [Concomitant]
     Route: 048
  15. FOLIC ACID [Concomitant]
     Route: 048

REACTIONS (5)
  - OESOPHAGEAL HAEMORRHAGE [None]
  - HAEMATEMESIS [None]
  - RECTAL HAEMORRHAGE [None]
  - EPISTAXIS [None]
  - LOBAR PNEUMONIA [None]
